FAERS Safety Report 10234781 (Version 1)
Quarter: 2014Q2

REPORT INFORMATION
  Report Type: Spontaneous
  Country: US (occurrence: None)
  Receive Date: 20140509
  Receipt Date: 20140509
  Transmission Date: 20141212
  Serious: Yes (Other)
  Sender: FDA-Public Use
  Company Number: VISP-PR-1402S-0069

PATIENT
  Age: 72 Year
  Sex: Male
  Weight: 93.44 kg

DRUGS (8)
  1. VISIPAQUE (IODIXANOL) [Suspect]
     Indication: LYMPHADENOPATHY
     Dates: start: 20131223, end: 20131223
  2. MORPHINE SULFATE [Concomitant]
  3. TERAZOSIN [Concomitant]
  4. ISOSORBIDE MONONITRATE [Concomitant]
  5. METOPROLOL [Concomitant]
  6. PRAVASTATIN [Concomitant]
  7. OMEPRAZOLE [Concomitant]
  8. NAPROXEN [Concomitant]

REACTIONS (1)
  - Hypersensitivity [None]
